FAERS Safety Report 4582964-9 (Version None)
Quarter: 2005Q1

REPORT INFORMATION
  Report Type: 
  Country: None (occurrence: None)
  Receive Date: 20050127
  Receipt Date: 20040917
  Transmission Date: 20050727
  Serious: No
  Sender: FDA-Public Use
  Company Number: USA040978648

PATIENT
  Age: 17 Year
  Sex: Male
  Weight: 111 kg

DRUGS (3)
  1. STRATTERA [Suspect]
     Indication: ATTENTION DEFICIT/HYPERACTIVITY DISORDER
     Dosage: 100 MG/1 DAY
     Dates: start: 20040804
  2. ALBUTEROL [Concomitant]
  3. SINGULAIR (MONTELUKAST) [Concomitant]

REACTIONS (3)
  - ANGER [None]
  - DRUG INEFFECTIVE [None]
  - MOOD SWINGS [None]
